FAERS Safety Report 8320478-0 (Version None)
Quarter: 2012Q2

REPORT INFORMATION
  Report Type: 
  Country: None (occurrence: None)
  Receive Date: 20120427
  Receipt Date: 20120427
  Transmission Date: 20120825
  Serious: Yes (Disabling)
  Sender: FDA-Public Use
  Company Number: None

PATIENT
  Age: 2 Year
  Sex: Female
  Weight: 9.979 kg

DRUGS (2)
  1. CETIRIZINE [Suspect]
     Indication: MULTIPLE ALLERGIES
     Dosage: I TEASPOON
     Route: 048
     Dates: start: 20120409, end: 20120425
  2. CETIRIZINE [Concomitant]

REACTIONS (5)
  - RESPIRATORY ARREST [None]
  - CRYING [None]
  - CONVULSION [None]
  - MUSCULOSKELETAL STIFFNESS [None]
  - FALL [None]
